FAERS Safety Report 12733496 (Version 1)
Quarter: 2016Q3

REPORT INFORMATION
  Report Type: Spontaneous
  Country: US (occurrence: US)
  Receive Date: 20160912
  Receipt Date: 20160912
  Transmission Date: 20161109
  Serious: Yes (Other)
  Sender: FDA-Public Use
  Company Number: US-TARO-2016TAR00744

PATIENT

DRUGS (1)
  1. CARBAMAZEPINE ORAL SUSPENSION USP 100MG/5ML [Suspect]
     Active Substance: CARBAMAZEPINE

REACTIONS (2)
  - Seizure [Unknown]
  - Product reconstitution issue [Unknown]
